FAERS Safety Report 4570436-7 (Version None)
Quarter: 2005Q1

REPORT INFORMATION
  Report Type: 
  Country: None (occurrence: None)
  Receive Date: 20050203
  Receipt Date: 20050203
  Transmission Date: 20050727
  Serious: Yes (Other)
  Sender: FDA-Public Use
  Company Number: None

PATIENT
  Age: 54 Year
  Sex: Female
  Weight: 58.9676 kg

DRUGS (1)
  1. DOXYCYCLINE [Suspect]
     Indication: PERIODONTAL DISEASE
     Dates: start: 20050112, end: 20050120

REACTIONS (1)
  - CHEST PAIN [None]
